FAERS Safety Report 8596155-8 (Version None)
Quarter: 2012Q3

REPORT INFORMATION
  Report Type: 
  Country: None (occurrence: None)
  Receive Date: 20120815
  Receipt Date: 20120809
  Transmission Date: 20120928
  Serious: Yes (Hospitalization)
  Sender: FDA-Public Use
  Company Number: CA-GLAXOSMITHKLINE-A0887442B

PATIENT
  Sex: Female
  Weight: 58.5 kg

DRUGS (8)
  1. HYDROMORPHONE HCL [Concomitant]
     Indication: PAIN
     Dates: start: 20100101
  2. DOCETAXEL [Suspect]
     Indication: BREAST CANCER METASTATIC
     Dosage: 60MGM2 EVERY 3 WEEKS
     Route: 042
     Dates: start: 20100930
  3. PROCHLORPERAZINE [Concomitant]
     Indication: PROPHYLAXIS
     Dates: start: 20100101
  4. METFORMIN HYDROCHLORIDE [Concomitant]
     Indication: DIABETES MELLITUS
     Dates: start: 20000101
  5. ASPIRIN [Concomitant]
     Indication: PROPHYLAXIS
     Dates: start: 20000101
  6. IBUPROFEN [Concomitant]
     Indication: PAIN
     Dates: start: 20100101
  7. LAPATINIB [Suspect]
     Indication: BREAST CANCER METASTATIC
     Dosage: 1000MG PER DAY
     Route: 048
     Dates: start: 20100930
  8. LORAZEPAM [Concomitant]
     Indication: PAIN
     Dates: start: 20100101

REACTIONS (2)
  - INFECTION [None]
  - DIARRHOEA [None]
